FAERS Safety Report 4778641-1 (Version None)
Quarter: 2005Q3

REPORT INFORMATION
  Report Type: 
  Country: None (occurrence: None)
  Receive Date: 20050926
  Receipt Date: 20050407
  Transmission Date: 20060218
  Serious: Yes (Other)
  Sender: FDA-Public Use
  Company Number: GB-2005-004474

PATIENT
  Age: 41 Year
  Sex: Female

DRUGS (7)
  1. MELPHALAN [Suspect]
     Route: 065
  2. CARMUSTINE [Suspect]
     Route: 065
  3. CYTARABINE [Suspect]
     Route: 065
  4. ETOPOSIDE [Suspect]
     Route: 065
  5. MABCAMPATH [Suspect]
     Dosage: 20MG FIVE TIMES PER DAY
     Route: 065
  6. CYCLOSPORINE [Concomitant]
     Indication: PROPHYLAXIS AGAINST TRANSPLANT REJECTION
     Route: 065
  7. METHOTREXATE [Concomitant]
     Indication: PROPHYLAXIS AGAINST TRANSPLANT REJECTION
     Route: 065

REACTIONS (5)
  - ANAEMIA HAEMOLYTIC AUTOIMMUNE [None]
  - AUTOIMMUNE THROMBOCYTOPENIA [None]
  - POLYCHROMASIA [None]
  - RETICULOCYTOSIS [None]
  - SPHEROCYTIC ANAEMIA [None]
